FAERS Safety Report 17455884 (Version 1)
Quarter: 2020Q1

REPORT INFORMATION
  Report Type: Spontaneous
  Country: US (occurrence: US)
  Receive Date: 20200212
  Receipt Date: 20200212
  Transmission Date: 20200409
  Serious: Yes (Hospitalization)
  Sender: FDA-Public Use
  Company Number: None

PATIENT
  Age: 60 Year
  Sex: Male

DRUGS (7)
  1. ALENOTRONATE [Concomitant]
  2. ALLOPURINOL. [Concomitant]
     Active Substance: ALLOPURINOL
  3. MAXFE [Concomitant]
     Active Substance: ASCORBIC ACID\BIOTIN\CYANOCOBALAMIN\DOCUSATE SODIUM\FOLIC ACID\IRON\MAGNESIUM\ZINC
  4. HYDROCORTISO [Concomitant]
  5. ACTEMRA [Suspect]
     Active Substance: TOCILIZUMAB
     Indication: TEMPORAL ARTERITIS
     Dosage: ?          OTHER FREQUENCY:Q2WKS ;?
     Route: 058
     Dates: start: 20191011
  6. LOSARTAN POT [Concomitant]
     Active Substance: LOSARTAN POTASSIUM
  7. CLONAZEPAM. [Concomitant]
     Active Substance: CLONAZEPAM

REACTIONS (2)
  - Temporal arteritis [None]
  - Condition aggravated [None]

NARRATIVE: CASE EVENT DATE: 20200125
